FAERS Safety Report 18857009 (Version 1)
Quarter: 2021Q1

REPORT INFORMATION
  Report Type: Report from Study
  Country: JP (occurrence: JP)
  Receive Date: 20210208
  Receipt Date: 20210208
  Transmission Date: 20210420
  Serious: Yes (Death, Other)
  Sender: FDA-Public Use
  Company Number: JP-SUN PHARMACEUTICAL INDUSTRIES LTD-2021R1-278967

PATIENT
  Age: 18 Year
  Sex: Male

DRUGS (5)
  1. MINOCYCLINE [Suspect]
     Active Substance: MINOCYCLINE HYDROCHLORIDE
     Route: 065
  2. MEROPENEM. [Suspect]
     Active Substance: MEROPENEM
     Route: 065
  3. LEVOFLOXACIN. [Suspect]
     Active Substance: LEVOFLOXACIN
     Route: 065
  4. LINEZOLIDE [Suspect]
     Active Substance: LINEZOLID
     Route: 065
  5. AMOXICILLIN/CLAVULANATE [Suspect]
     Active Substance: AMOXICILLIN\CLAVULANATE POTASSIUM
     Route: 065

REACTIONS (3)
  - Drug ineffective [Fatal]
  - Pulmonary nocardiosis [Fatal]
  - Bronchiolitis obliterans syndrome [Fatal]
